FAERS Safety Report 8257389-5 (Version None)
Quarter: 2012Q2

REPORT INFORMATION
  Report Type: 
  Country: None (occurrence: None)
  Receive Date: 20120403
  Receipt Date: 20120328
  Transmission Date: 20120825
  Serious: Yes (Other)
  Sender: FDA-Public Use
  Company Number: BR-PFIZER INC-2012054109

PATIENT
  Age: 49 Year
  Sex: Male
  Weight: 60 kg

DRUGS (6)
  1. SUTENT [Suspect]
     Indication: GASTROINTESTINAL STROMAL TUMOUR
     Dosage: 50 MG, 1X/DAY
     Route: 048
     Dates: start: 20110710
  2. VALSARTAN [Concomitant]
     Dosage: 160 MG, 1X/DAY (2 TABLETS OF 80 MG, DAILY)
  3. LEVOID [Concomitant]
     Dosage: 75 MG, 1X/DAY
  4. AMLODIPINE BESILATE [Concomitant]
     Dosage: 10 MG, 1X/DAY
  5. HYDROCHLOROTHIAZIDE [Concomitant]
     Dosage: 5 MG, 1X/DAY
  6. VALSARTAN [Concomitant]
     Dosage: 160 MG, DAILY

REACTIONS (7)
  - WOUND [None]
  - PLATELET FUNCTION TEST ABNORMAL [None]
  - EAR INFECTION [None]
  - THYROID DISORDER [None]
  - AGEUSIA [None]
  - BLOOD PRESSURE INCREASED [None]
  - GLOSSODYNIA [None]
